FAERS Safety Report 16899237 (Version 1)
Quarter: 2019Q4

REPORT INFORMATION
  Report Type: Spontaneous
  Country: US (occurrence: US)
  Receive Date: 20191009
  Receipt Date: 20191009
  Transmission Date: 20200122
  Serious: Yes (Other)
  Sender: FDA-Public Use
  Company Number: US-RECKITT BENCKISER HEALTHCARE INT LIMITED-RB-90779-2019

PATIENT
  Age: 37 Year
  Sex: Female

DRUGS (1)
  1. DEXTROMETHORPHAN [Suspect]
     Active Substance: DEXTROMETHORPHAN
     Indication: PRODUCT USED FOR UNKNOWN INDICATION
     Dosage: 1400 MILLIGRAM, IN TOTAL AT AN UNKNOWN FREQUENCY, OVER THE COURSE OF 3 DAYS
     Route: 048

REACTIONS (6)
  - Incorrect product administration duration [Unknown]
  - Psychotic disorder [Unknown]
  - Mania [Unknown]
  - Intentional self-injury [Unknown]
  - Toxicity to various agents [Unknown]
  - Altered state of consciousness [Unknown]
